FAERS Safety Report 6058576-7 (Version None)
Quarter: 2009Q1

REPORT INFORMATION
  Report Type: 
  Country: None (occurrence: None)
  Receive Date: 20090130
  Receipt Date: 20090128
  Transmission Date: 20090719
  Serious: Yes (Death)
  Sender: FDA-Public Use
  Company Number: JP-JNJFOC-20090103840

PATIENT
  Sex: Female

DRUGS (4)
  1. FENTANYL CITRATE [Suspect]
     Dosage: 50UG/HR X 20 PATCHES
     Route: 062
  2. FENTANYL CITRATE [Suspect]
     Indication: DRUG USE FOR UNKNOWN INDICATION
     Dosage: 50UG/HR X 26 PATCHES
     Route: 062
  3. MORPHINE [Suspect]
  4. MORPHINE [Suspect]
     Indication: DRUG USE FOR UNKNOWN INDICATION

REACTIONS (2)
  - PNEUMONIA [None]
  - WITHDRAWAL SYNDROME [None]
